FAERS Safety Report 4815344-9 (Version None)
Quarter: 2005Q4

REPORT INFORMATION
  Report Type: 
  Country: None (occurrence: None)
  Receive Date: 20051027
  Receipt Date: 20051012
  Transmission Date: 20060501
  Serious: Yes (Other)
  Sender: FDA-Public Use
  Company Number: C-05-0046

PATIENT
  Age: 47 Year
  Sex: Male
  Weight: 136.0791 kg

DRUGS (1)
  1. LINDANE [Suspect]
     Dosage: USE 2 TIMES PER DAY
     Dates: start: 20051011, end: 20051012

REACTIONS (1)
  - PHARMACEUTICAL PRODUCT COMPLAINT [None]
